FAERS Safety Report 9028646 (Version 2)
Quarter: 2013Q2

REPORT INFORMATION
  Report Type: Spontaneous
  Country: US (occurrence: US)
  Receive Date: 20130124
  Receipt Date: 20130619
  Transmission Date: 20140414
  Serious: Yes (Life-Threatening, Hospitalization)
  Sender: FDA-Public Use
  Company Number: US-BAYER-2013-009594

PATIENT
  Age: 37 Year
  Sex: Female
  Weight: 73.47 kg

DRUGS (5)
  1. YAZ [Suspect]
     Indication: CONTRACEPTION
     Dosage: UNK
     Dates: start: 2011, end: 2011
  2. YAZ [Suspect]
     Indication: MENSTRUAL CYCLE MANAGEMENT
  3. LASIX [Concomitant]
  4. ZYRTEC [Concomitant]
     Indication: SEASONAL ALLERGY
  5. FLONASE [Concomitant]
     Indication: SEASONAL ALLERGY

REACTIONS (7)
  - Deep vein thrombosis [None]
  - Anxiety [None]
  - Anhedonia [None]
  - Fear [None]
  - Injury [None]
  - Local swelling [None]
  - Pain in extremity [None]
